FAERS Safety Report 12852838 (Version 2)
Quarter: 2017Q1

REPORT INFORMATION
  Report Type: Report from Study
  Country: FR (occurrence: FR)
  Receive Date: 20161017
  Receipt Date: 20170116
  Transmission Date: 20170428
  Serious: Yes (Other)
  Sender: FDA-Public Use
  Company Number: FR-ROCHE-1158685

PATIENT
  Age: 62 Year
  Sex: Male
  Weight: 80 kg

DRUGS (3)
  1. VISMODEGIB [Suspect]
     Active Substance: VISMODEGIB
     Indication: CHONDROSARCOMA
     Dosage: TOTAL COURSE 1 DOSE:5700 MG
     Route: 048
     Dates: start: 20120220
  2. VISMODEGIB [Suspect]
     Active Substance: VISMODEGIB
     Dosage: COURSE 2
     Route: 048
     Dates: start: 20120329
  3. VISMODEGIB [Suspect]
     Active Substance: VISMODEGIB
     Dosage: COURSE 4
     Route: 048
     Dates: start: 20120509, end: 20120606

REACTIONS (2)
  - Hypoalbuminaemia [Not Recovered/Not Resolved]
  - Embolism [Unknown]

NARRATIVE: CASE EVENT DATE: 20120312
